FAERS Safety Report 13863396 (Version 2)
Quarter: 2017Q4

REPORT INFORMATION
  Report Type: Spontaneous
  Country: US (occurrence: US)
  Receive Date: 20170814
  Receipt Date: 20171130
  Transmission Date: 20180320
  Serious: Yes (Hospitalization)
  Sender: FDA-Public Use
  Company Number: US-PFIZER INC-2017349187

PATIENT
  Age: 63 Year
  Sex: Male
  Weight: 104 kg

DRUGS (13)
  1. DEPO-TESTOSTERONE [Suspect]
     Active Substance: TESTOSTERONE CYPIONATE
     Indication: HORMONE REPLACEMENT THERAPY
     Dosage: 200 MG, EVERY 2 WEEKS
     Route: 030
  2. DEPO-TESTOSTERONE [Suspect]
     Active Substance: TESTOSTERONE CYPIONATE
     Dosage: 200 MG [EVERY 14 DAY^S ]
     Dates: start: 20031028
  3. TAGAMET [Concomitant]
     Active Substance: CIMETIDINE
  4. FELODIPINE. [Concomitant]
     Active Substance: FELODIPINE
  5. PANTOPRAZOLE [Concomitant]
     Active Substance: PANTOPRAZOLE
  6. DUTASTERIDE. [Concomitant]
     Active Substance: DUTASTERIDE
  7. DEPO-TESTOSTERONE [Suspect]
     Active Substance: TESTOSTERONE CYPIONATE
     Indication: TESTIS CANCER
     Dosage: 200 MG, EVERY 2 WEEKS
     Route: 030
  8. DEPO-TESTOSTERONE [Suspect]
     Active Substance: TESTOSTERONE CYPIONATE
     Dosage: 200 MG, EVERY 2 WEEKS
     Route: 030
  9. CYCLOBENZAPRINE. [Concomitant]
     Active Substance: CYCLOBENZAPRINE
  10. TAMSULOSIN [Concomitant]
     Active Substance: TAMSULOSIN
  11. AMLODIPINE [Concomitant]
     Active Substance: AMLODIPINE BESYLATE
  12. METOPROLOL. [Concomitant]
     Active Substance: METOPROLOL
  13. RESTASIS [Concomitant]
     Active Substance: CYCLOSPORINE

REACTIONS (4)
  - Hepatomegaly [Unknown]
  - Feeling hot [Recovered/Resolved]
  - Feeling abnormal [Unknown]
  - Product quality issue [Recovered/Resolved]

NARRATIVE: CASE EVENT DATE: 2017
